FAERS Safety Report 9083749 (Version 1)
Quarter: 2013Q1

REPORT INFORMATION
  Report Type: Report from Study
  Country: US (occurrence: US)
  Receive Date: 20130130
  Receipt Date: 20130130
  Transmission Date: 20140127
  Serious: No
  Sender: FDA-Public Use
  Company Number: US-ABBOTT-12P-163-0987866-00

PATIENT
  Age: 30 Year
  Sex: Female

DRUGS (8)
  1. HUMIRA [Suspect]
     Indication: COLITIS ULCERATIVE
  2. SEVERAL UNKNOWN INHALERS [Concomitant]
     Indication: HYPERSENSITIVITY
  3. SEVERAL UNKNOWN INHALERS [Concomitant]
     Indication: ASTHMA
  4. UNKNOWN NASAL SPRAYS [Concomitant]
     Indication: HYPERSENSITIVITY
  5. UNKNOWN NASAL SPRAYS [Concomitant]
     Indication: ASTHMA
  6. 6-MP [Concomitant]
     Indication: COLITIS ULCERATIVE
     Dosage: 50MG DAILY
     Route: 048
  7. KEPPRA [Concomitant]
     Indication: CONVULSION
     Route: 048
  8. FEXOFENADINE [Concomitant]
     Indication: HYPERSENSITIVITY
     Dosage: 180MG DAILY

REACTIONS (3)
  - Nasal congestion [Unknown]
  - Exposure to communicable disease [Unknown]
  - Cough [Unknown]
